FAERS Safety Report 7064989-7 (Version None)
Quarter: 2010Q4

REPORT INFORMATION
  Report Type: 
  Country: None (occurrence: None)
  Receive Date: 20101027
  Receipt Date: 20101013
  Transmission Date: 20110411
  Serious: Yes (Hospitalization, Other)
  Sender: FDA-Public Use
  Company Number: PHHY2010BR69192

PATIENT
  Sex: Female
  Weight: 72 kg

DRUGS (1)
  1. DIOVAN AMLO FIX [Suspect]
     Indication: HYPERTENSION
     Dosage: ONE TABLET (160/5 MG) DAILY
     Route: 048

REACTIONS (1)
  - MYOMECTOMY [None]
